FAERS Safety Report 14600412 (Version 1)
Quarter: 2018Q1

REPORT INFORMATION
  Report Type: Spontaneous
  Country: US (occurrence: US)
  Receive Date: 20180305
  Receipt Date: 20180305
  Transmission Date: 20180509
  Serious: No
  Sender: FDA-Public Use
  Company Number: US-CVS PREMIER BRANDS OF AMERICA INC.-2042983

PATIENT
  Age: 50 Year
  Sex: Female
  Weight: 63.64 kg

DRUGS (3)
  1. SALICYLIC ACID. [Suspect]
     Active Substance: SALICYLIC ACID
     Indication: HYPERKERATOSIS
     Route: 061
     Dates: start: 20180124, end: 20180130
  2. SILVADENE [Concomitant]
     Active Substance: SILVER SULFADIAZINE
     Route: 065
  3. AMLODIPINE [Concomitant]
     Active Substance: AMLODIPINE BESYLATE
     Route: 065

REACTIONS (4)
  - Chemical burn [Recovering/Resolving]
  - Hypertension [None]
  - Condition aggravated [None]
  - Poor peripheral circulation [None]

NARRATIVE: CASE EVENT DATE: 20180130
